FAERS Safety Report 7943579-5 (Version None)
Quarter: 2011Q4

REPORT INFORMATION
  Report Type: 
  Country: None (occurrence: None)
  Receive Date: 20111128
  Receipt Date: 20111114
  Transmission Date: 20120403
  Serious: No
  Sender: FDA-Public Use
  Company Number: US-B.I. PHARMACEUTICALS,INC./RIDGEFIELD-2011-BP-26209BP

PATIENT
  Age: 77 Year
  Sex: Female

DRUGS (10)
  1. SPIRIVA [Concomitant]
     Indication: CHRONIC OBSTRUCTIVE PULMONARY DISEASE
     Route: 055
  2. RANITIDINE [Concomitant]
     Indication: GASTROOESOPHAGEAL REFLUX DISEASE
     Route: 048
  3. SLEEP AID [Concomitant]
     Indication: INSOMNIA
     Route: 048
  4. PRADAXA [Suspect]
     Indication: ATRIAL FIBRILLATION
     Dosage: 300 NG
     Route: 048
     Dates: start: 20111010, end: 20111111
  5. FUROSEMIDE [Concomitant]
     Indication: CARDIAC FAILURE
     Route: 048
  6. EPLERENONE [Concomitant]
     Indication: CARDIAC FAILURE
     Route: 048
  7. ROPINIROLE [Concomitant]
     Indication: RESTLESS LEGS SYNDROME
     Route: 048
  8. DIOVAN [Concomitant]
     Indication: HYPERTENSION
     Route: 048
  9. LANTUS [Concomitant]
     Indication: DIABETES MELLITUS
     Route: 058
  10. ATENOLOL [Concomitant]
     Indication: HYPERTENSION
     Route: 048

REACTIONS (7)
  - INSOMNIA [None]
  - ASTHENIA [None]
  - DYSPEPSIA [None]
  - NAUSEA [None]
  - DIARRHOEA [None]
  - DIZZINESS [None]
  - ABDOMINAL DISTENSION [None]
